FAERS Safety Report 10710618 (Version 2)
Quarter: 2015Q1

REPORT INFORMATION
  Report Type: Spontaneous
  Country: JP (occurrence: JP)
  Receive Date: 20150114
  Receipt Date: 20150123
  Transmission Date: 20150721
  Serious: Yes (Hospitalization, Other)
  Sender: FDA-Public Use
  Company Number: JP-PFIZER INC-2014357981

PATIENT
  Age: 33 Month
  Sex: Female

DRUGS (1)
  1. ZITHROMAC [Suspect]
     Active Substance: AZITHROMYCIN DIHYDRATE
     Dosage: UNK
     Route: 048
     Dates: start: 20141218, end: 20141220

REACTIONS (2)
  - Drug effect incomplete [Unknown]
  - Pneumonia bacterial [Recovered/Resolved]
